FAERS Safety Report 26099134 (Version 2)
Quarter: 2025Q4

REPORT INFORMATION
  Report Type: Spontaneous
  Country: EU (occurrence: EU)
  Receive Date: 20251128
  Receipt Date: 20251202
  Transmission Date: 20260117
  Serious: Yes (Death, Other)
  Sender: AUROBINDO
  Company Number: EU-NEURAXPHARM PHARMACEUTICALS, S.L-FR-NEU-25-114759

PATIENT
  Age: 84 Year
  Sex: Female

DRUGS (5)
  1. METHOTREXATE [Suspect]
     Active Substance: METHOTREXATE
     Indication: Enteropathy-associated T-cell lymphoma
     Dosage: INTRAVITREAL ROUTE
  2. METHOTREXATE [Suspect]
     Active Substance: METHOTREXATE
     Dosage: 3 G/M2 D1, D15
  3. TEMOZOLOMIDE [Suspect]
     Active Substance: TEMOZOLOMIDE
     Indication: Enteropathy-associated T-cell lymphoma
     Dosage: 150 MG/M2  EVERY 4 WEEKS
  4. PROCARBAZINE [Suspect]
     Active Substance: PROCARBAZINE
     Indication: Enteropathy-associated T-cell lymphoma
     Dosage: UNK
     Route: 065
  5. VINCRISTINE [Suspect]
     Active Substance: VINCRISTINE
     Indication: Enteropathy-associated T-cell lymphoma
     Dosage: UNK
     Route: 065

REACTIONS (3)
  - Disease progression [Fatal]
  - Corneal toxicity [Unknown]
  - Product use in unapproved indication [Unknown]
